FAERS Safety Report 5050531-9 (Version None)
Quarter: 2006Q3

REPORT INFORMATION
  Report Type: 
  Country: None (occurrence: None)
  Receive Date: 20060707
  Receipt Date: 20060621
  Transmission Date: 20061208
  Serious: Yes (Hospitalization, Other)
  Sender: FDA-Public Use
  Company Number: 2202

PATIENT
  Age: 63 Year
  Sex: Female
  Weight: 57 kg

DRUGS (5)
  1. TARGRETIN [Suspect]
     Indication: MYCOSIS FUNGOIDES
     Dosage: 300 MG QD PO
     Route: 048
     Dates: start: 20060327, end: 20060409
  2. TAHOR (ATORVASTATIN) [Suspect]
     Indication: DYSLIPIDAEMIA
     Dosage: 20 MG QD PO
     Route: 048
     Dates: start: 20060327
  3. ATORVASTATIN CALCIUM [Concomitant]
  4. DESLORATADINE [Concomitant]
  5. HYDROXYZINE HYDROCHLORIDE [Concomitant]

REACTIONS (12)
  - ALANINE AMINOTRANSFERASE INCREASED [None]
  - ASPARTATE AMINOTRANSFERASE INCREASED [None]
  - CONJUNCTIVAL HYPERAEMIA [None]
  - EOSINOPHILIA [None]
  - EPIDERMAL NECROSIS [None]
  - FACE OEDEMA [None]
  - HYPERSENSITIVITY [None]
  - ORAL MUCOSA EROSION [None]
  - PALMAR-PLANTAR ERYTHRODYSAESTHESIA SYNDROME [None]
  - PYREXIA [None]
  - SKIN EXFOLIATION [None]
  - TOXIC SKIN ERUPTION [None]
